FAERS Safety Report 7194376-2 (Version None)
Quarter: 2010Q4

REPORT INFORMATION
  Report Type: 
  Country: None (occurrence: None)
  Receive Date: 20101124
  Receipt Date: 20101021
  Transmission Date: 20110411
  Serious: No
  Sender: FDA-Public Use
  Company Number: 020785

PATIENT
  Sex: Female
  Weight: 120.2 kg

DRUGS (12)
  1. LACOSAMIDE [Suspect]
     Indication: CONVULSION
     Dosage: SEE IMAGE
     Route: 048
     Dates: start: 20090801, end: 20100701
  2. LACOSAMIDE [Suspect]
     Indication: CONVULSION
     Dosage: SEE IMAGE
     Route: 048
     Dates: start: 20100801
  3. KEPPRA [Suspect]
     Indication: CONVULSION
     Dosage: (2000 MG BID ORAL)
     Route: 048
  4. TRILEPTAL [Concomitant]
  5. CRESTOR [Concomitant]
  6. NEXIUM [Concomitant]
  7. NAPROXEN [Concomitant]
  8. VITAMIN B1 TAB [Concomitant]
  9. GALENIC /CALCIUM/VITAMIN D/ [Concomitant]
  10. MULTI-VITAMINS [Concomitant]
  11. LORTAB [Concomitant]
  12. CORTISONE [Concomitant]

REACTIONS (1)
  - ABDOMINAL PAIN [None]
